FAERS Safety Report 21578288 (Version 1)
Quarter: 2022Q4

REPORT INFORMATION
  Report Type: Spontaneous
  Country: ES (occurrence: ES)
  Receive Date: 20221110
  Receipt Date: 20221110
  Transmission Date: 20230113
  Serious: Yes (Other)
  Sender: FDA-Public Use
  Company Number: ES-002147023-NVSC2022ES249785

PATIENT
  Age: 67 Year
  Sex: Female

DRUGS (1)
  1. RIBOCICLIB [Suspect]
     Active Substance: RIBOCICLIB
     Indication: Breast cancer metastatic
     Dosage: 500 MG, QD
     Route: 048

REACTIONS (1)
  - Cornea verticillata [Not Recovered/Not Resolved]
